FAERS Safety Report 6484197-8 (Version None)
Quarter: 2009Q4

REPORT INFORMATION
  Report Type: 
  Country: None (occurrence: None)
  Receive Date: 20091209
  Receipt Date: 20090522
  Transmission Date: 20100525
  Serious: No
  Sender: FDA-Public Use
  Company Number: US-AMGEN-KDL348316

PATIENT
  Sex: Male

DRUGS (2)
  1. ENBREL [Suspect]
     Indication: RHEUMATOID ARTHRITIS
     Route: 058
     Dates: start: 20090325
  2. METHOTREXATE [Concomitant]
     Dates: start: 20090301

REACTIONS (4)
  - INJECTION SITE PAPULE [None]
  - INJECTION SITE PRURITUS [None]
  - PRURITUS [None]
  - RASH PAPULAR [None]
